FAERS Safety Report 11069426 (Version 1)
Quarter: 2015Q2

REPORT INFORMATION
  Report Type: Spontaneous
  Country: JP (occurrence: JP)
  Receive Date: 20150427
  Receipt Date: 20150427
  Transmission Date: 20150821
  Serious: Yes (Death, Other)
  Sender: FDA-Public Use
  Company Number: JP-ALEXION-A201501285

PATIENT

DRUGS (1)
  1. SOLIRIS [Suspect]
     Active Substance: ECULIZUMAB
     Indication: HAEMOLYTIC URAEMIC SYNDROME
     Dosage: 900 MG, SINGLE
     Route: 042
     Dates: start: 20150316, end: 20150316

REACTIONS (4)
  - Depressed level of consciousness [Unknown]
  - Drug ineffective [Unknown]
  - Hepatic encephalopathy [Fatal]
  - Condition aggravated [Fatal]

NARRATIVE: CASE EVENT DATE: 2015
